FAERS Safety Report 6888494-3 (Version None)
Quarter: 2010Q3

REPORT INFORMATION
  Report Type: 
  Country: None (occurrence: None)
  Receive Date: 20100730
  Receipt Date: 20100719
  Transmission Date: 20110219
  Serious: Yes (Other)
  Sender: FDA-Public Use
  Company Number: PHHY2010BR48288

PATIENT
  Sex: Female

DRUGS (2)
  1. DIOVAN [Suspect]
     Dosage: 160 MG, BID
     Route: 048
  2. DIOVAN [Suspect]
     Dosage: 320 MG 1 TABLET DAILY
     Route: 048

REACTIONS (2)
  - HEADACHE [None]
  - HYPERTENSION [None]
